FAERS Safety Report 19456286 (Version 2)
Quarter: 2021Q3

REPORT INFORMATION
  Report Type: Spontaneous
  Country: US (occurrence: US)
  Receive Date: 20210624
  Receipt Date: 20210923
  Transmission Date: 20211014
  Serious: No
  Sender: FDA-Public Use
  Company Number: US-BRISTOL-MYERS SQUIBB COMPANY-BMS-2021-061480

PATIENT
  Age: 60 Year
  Sex: Female

DRUGS (1)
  1. ORENCIA [Suspect]
     Active Substance: ABATACEPT
     Indication: RHEUMATOID ARTHRITIS
     Dosage: 125MILLIGRAM/MILLITRE QWK
     Route: 058
     Dates: start: 20200930

REACTIONS (10)
  - Sinus disorder [Not Recovered/Not Resolved]
  - Productive cough [Unknown]
  - Ear disorder [Unknown]
  - Balance disorder [Unknown]
  - Upper-airway cough syndrome [Unknown]
  - Walking aid user [Unknown]
  - Migraine [Unknown]
  - Fatigue [Unknown]
  - Oropharyngeal pain [Unknown]
  - Seasonal allergy [Unknown]

NARRATIVE: CASE EVENT DATE: 20210517
